FAERS Safety Report 10598361 (Version 1)
Quarter: 2014Q4

REPORT INFORMATION
  Report Type: Spontaneous
  Country: US (occurrence: None)
  Receive Date: 20141114
  Receipt Date: 20141114
  Transmission Date: 20150529
  Serious: Yes (Life-Threatening, Other)
  Sender: FDA-Public Use
  Company Number: 13-05075

PATIENT

DRUGS (2)
  1. NEPHRON PHARMACEUTICALS CORPORATION [Suspect]
     Active Substance: UNSPECIFIED INGREDIENT
     Dosage: UNKNOWN DOSE UNKNOWN THERAPY DATES
  2. ALBUTEROL SULFATE INHALATION SOLUTION, 0.083% [Suspect]
     Active Substance: ALBUTEROL SULFATE
     Indication: PRODUCT USED FOR UNKNOWN INDICATION
     Dosage: UNKNOWN   UNKNOWN THERAPY DATES

REACTIONS (1)
  - No therapeutic response [None]
